FAERS Safety Report 9999800 (Version 1)
Quarter: 2014Q1

REPORT INFORMATION
  Report Type: Spontaneous
  Country: PL (occurrence: PL)
  Receive Date: 20140312
  Receipt Date: 20140312
  Transmission Date: 20141002
  Serious: Yes (Other)
  Sender: FDA-Public Use
  Company Number: PL-ACTAVIS-2014-04152

PATIENT
  Age: 67 Year
  Sex: Male
  Weight: 80 kg

DRUGS (2)
  1. CISPLATIN (UNKNOWN) [Suspect]
     Indication: BLADDER CANCER
     Dosage: 150 MG, UNKNOWN
     Route: 042
     Dates: start: 20130715, end: 20131118
  2. GEMCITABINE (UNKNOWN) [Suspect]
     Indication: BLADDER CANCER
     Dosage: 1950 MG, UNKNOWN
     Route: 042
     Dates: start: 20130715, end: 20131118

REACTIONS (1)
  - Hyperglycaemia [Recovering/Resolving]
